FAERS Safety Report 4548657-9 (Version None)
Quarter: 2005Q1

REPORT INFORMATION
  Report Type: 
  Country: None (occurrence: None)
  Receive Date: 20050107
  Receipt Date: 20050107
  Transmission Date: 20050727
  Serious: Yes (Disabling)
  Sender: FDA-Public Use
  Company Number: None

PATIENT
  Age: 52 Year
  Sex: Female
  Weight: 99 kg

DRUGS (10)
  1. DOXORUBICIN 2 MG/ML (BRADFORD) [Suspect]
     Indication: BREAST CANCER
     Dosage: 60 MG/M2 IV Q 2 WKS
     Route: 042
     Dates: start: 20041122
  2. DOXORUBICIN 2 MG/ML (BRADFORD) [Suspect]
     Indication: BREAST CANCER
     Dosage: 60 MG/M2 IV Q 2 WKS
     Route: 042
     Dates: start: 20041207
  3. DOXORUBICIN 2 MG/ML (BRADFORD) [Suspect]
     Indication: BREAST CANCER
     Dosage: 60 MG/M2 IV Q 2 WKS
     Route: 042
     Dates: start: 20041220
  4. CYCLOPHOSPHAMIDE [Suspect]
     Indication: BREAST CANCER
     Dosage: 600 MG/M2 IV Q 2 WKS
     Route: 042
     Dates: start: 20041122
  5. CYCLOPHOSPHAMIDE [Suspect]
     Indication: BREAST CANCER
     Dosage: 600 MG/M2 IV Q 2 WKS
     Route: 042
     Dates: start: 20041207
  6. CYCLOPHOSPHAMIDE [Suspect]
     Indication: BREAST CANCER
     Dosage: 600 MG/M2 IV Q 2 WKS
     Route: 042
     Dates: start: 20041220
  7. NEUPOGEN [Concomitant]
  8. ANZEMET [Concomitant]
  9. DECADRON [Concomitant]
  10. MEPCLOPRAMIDE [Concomitant]

REACTIONS (2)
  - DIFFICULTY IN WALKING [None]
  - PALMAR-PLANTAR ERYTHRODYSAESTHESIA SYNDROME [None]
